FAERS Safety Report 5763405-2 (Version None)
Quarter: 2008Q2

REPORT INFORMATION
  Report Type: 
  Country: None (occurrence: None)
  Receive Date: 20080604
  Receipt Date: 20080604
  Transmission Date: 20081010
  Serious: No
  Sender: FDA-Public Use
  Company Number: None

PATIENT
  Sex: Male
  Weight: 75 kg

DRUGS (1)
  1. LANTUS [Suspect]
     Indication: TYPE 2 DIABETES MELLITUS
     Dosage: 18 I U 1 D,D ID
     Route: 023
     Dates: start: 20080110, end: 20080601

REACTIONS (4)
  - EAR PAIN [None]
  - INFLUENZA LIKE ILLNESS [None]
  - MYALGIA [None]
  - SEASONAL ALLERGY [None]
